FAERS Safety Report 4744971-2 (Version None)
Quarter: 2005Q3

REPORT INFORMATION
  Report Type: 
  Country: None (occurrence: None)
  Receive Date: 20050815
  Receipt Date: 20050804
  Transmission Date: 20060218
  Serious: Yes (Death)
  Sender: FDA-Public Use
  Company Number: FR-BRISTOL-MYERS SQUIBB COMPANY-13063367

PATIENT
  Age: 95 Year
  Sex: Female

DRUGS (8)
  1. COUMADIN [Suspect]
     Dosage: 4 MG DAILY FROM 12-AUG-2003 - 17-AUG-2003; 1 MG DAILY FROM 18-AUG-2003 - 20-AUG-2003.
     Route: 048
     Dates: start: 20030812, end: 20030820
  2. LOVENOX [Suspect]
     Route: 058
     Dates: start: 20030728, end: 20030821
  3. CORTANCYL [Suspect]
  4. EQUANIL [Concomitant]
  5. DIGOXIN [Concomitant]
  6. PRIMPERAN INJ [Concomitant]
  7. IMOVANE [Concomitant]
  8. HEPARIN [Concomitant]
     Indication: PROPHYLAXIS

REACTIONS (2)
  - ANAPHYLACTIC SHOCK [None]
  - HAEMORRHAGE [None]
